FAERS Safety Report 5093843-5 (Version None)
Quarter: 2006Q3

REPORT INFORMATION
  Report Type: 
  Country: None (occurrence: None)
  Receive Date: 20060829
  Receipt Date: 20060829
  Transmission Date: 20061208
  Serious: Yes (Other)
  Sender: FDA-Public Use
  Company Number: None

PATIENT
  Age: 63 Year
  Sex: Male
  Weight: 115.7 kg

DRUGS (15)
  1. LEVALBUTEROL HCL [Suspect]
  2. LORATADINE [Concomitant]
  3. LISINOPRIL [Concomitant]
  4. SIMVASTATIN [Concomitant]
  5. TIOTROPIUM [Concomitant]
  6. ALBUTEROL [Concomitant]
  7. ALBUTEROL / IPRATROP [Concomitant]
  8. FLUNISOLIDE [Concomitant]
  9. PROPOXYPHENE N [Concomitant]
  10. AEROCHAMBER PLUS [Concomitant]
  11. MONTELUKAST [Concomitant]
  12. FORMOTEROL FUMARATE [Concomitant]
  13. OMEPRAZOLE [Concomitant]
  14. ATENOLOL [Concomitant]
  15. GLYBURIDE AND METFORMIN HCL [Concomitant]

REACTIONS (3)
  - COUGH [None]
  - DYSPNOEA [None]
  - HEADACHE [None]
